FAERS Safety Report 6854740-5 (Version None)
Quarter: 2010Q3

REPORT INFORMATION
  Report Type: 
  Country: None (occurrence: None)
  Receive Date: 20100717
  Receipt Date: 20080110
  Transmission Date: 20110219
  Serious: No
  Sender: FDA-Public Use
  Company Number: US-PFIZER INC-2008004496

PATIENT
  Age: 39 Year
  Sex: Female
  Weight: 61.363 kg

DRUGS (4)
  1. CHANTIX [Suspect]
     Indication: SMOKING CESSATION THERAPY
     Dates: start: 20061219
  2. BENADRYL [Concomitant]
  3. NAPROSYN [Concomitant]
  4. DIAZEPAM [Concomitant]

REACTIONS (11)
  - ABDOMINAL DISTENSION [None]
  - ANGER [None]
  - CRYING [None]
  - DEPRESSED MOOD [None]
  - DISTURBANCE IN ATTENTION [None]
  - FATIGUE [None]
  - FLATULENCE [None]
  - HYPOTENSION [None]
  - INSOMNIA [None]
  - NIGHTMARE [None]
  - WEIGHT INCREASED [None]
